FAERS Safety Report 8124300-7 (Version None)
Quarter: 2012Q1

REPORT INFORMATION
  Report Type: 
  Country: None (occurrence: None)
  Receive Date: 20120209
  Receipt Date: 20120207
  Transmission Date: 20120608
  Serious: Yes (Other)
  Sender: FDA-Public Use
  Company Number: US-PFIZER INC-2012033638

PATIENT
  Sex: Female
  Weight: 45.351 kg

DRUGS (5)
  1. AMLODIPINE BESYLATE [Suspect]
     Indication: HYPERTENSION
     Dosage: UNK
     Dates: start: 20110601, end: 20110601
  2. TRIAMTERENE [Concomitant]
     Dosage: UNK
  3. HYDROCHLOROTHIAZIDE [Concomitant]
     Dosage: UNK
  4. LISINOPRIL [Concomitant]
     Dosage: UNK, 1X/DAY
  5. AMLODIPINE BESYLATE [Suspect]
     Dosage: UNK
     Dates: start: 20120101, end: 20120101

REACTIONS (7)
  - BLINDNESS [None]
  - NAUSEA [None]
  - JOINT SWELLING [None]
  - OEDEMA PERIPHERAL [None]
  - METAMORPHOPSIA [None]
  - HEADACHE [None]
  - MALAISE [None]
